FAERS Safety Report 4600010-5 (Version None)
Quarter: 2005Q1

REPORT INFORMATION
  Report Type: 
  Country: None (occurrence: None)
  Receive Date: 20050303
  Receipt Date: 20050214
  Transmission Date: 20050727
  Serious: Yes (Hospitalization)
  Sender: FDA-Public Use
  Company Number: US_0501110591

PATIENT
  Age: 78 Year
  Sex: Female

DRUGS (12)
  1. CYMBALTA [Suspect]
     Dosage: 60 MG DAY
  2. NAMENDA (MEMANTINE HYDROCHLORIDE) [Concomitant]
  3. SYNTHROID [Concomitant]
  4. ARICEPT [Concomitant]
  5. ASPIRIN [Concomitant]
  6. NORVASC [Concomitant]
  7. ADVAIR DISKUS 100/50 [Concomitant]
  8. AVAPRO [Concomitant]
  9. RISPERDAL [Concomitant]
  10. VITAMIN E [Concomitant]
  11. FLOTX [Concomitant]
  12. REMERON (MIRTAZAPINE ORIFARM) [Concomitant]

REACTIONS (12)
  - BLOOD GLUCOSE INCREASED [None]
  - BLOOD POTASSIUM INCREASED [None]
  - BLOOD SODIUM DECREASED [None]
  - BLOOD THYROID STIMULATING HORMONE INCREASED [None]
  - CONFUSIONAL STATE [None]
  - GENERAL PHYSICAL HEALTH DETERIORATION [None]
  - GLYCOSYLATED HAEMOGLOBIN INCREASED [None]
  - HALLUCINATION, AUDITORY [None]
  - HYPERSOMNIA [None]
  - PAIN IN EXTREMITY [None]
  - SLEEP APNOEA SYNDROME [None]
  - VOMITING [None]
